FAERS Safety Report 5678023-4 (Version None)
Quarter: 2008Q1

REPORT INFORMATION
  Report Type: 
  Country: None (occurrence: None)
  Receive Date: 20080324
  Receipt Date: 20080324
  Transmission Date: 20080703
  Serious: Yes (Other)
  Sender: FDA-Public Use
  Company Number: None

PATIENT
  Sex: Male
  Weight: 84.369 kg

DRUGS (2)
  1. IRON SUPPLEMENTAL DROPS 15MG PER 0.6ML GOLDLINE [Suspect]
     Indication: POSTOPERATIVE CARE
     Dosage: 325MG TWICE DAILY OTHER
     Route: 050
     Dates: start: 20080320, end: 20080321
  2. IRON SUPPLEMENTAL DROPS 15MG PER 0.6ML GOLDLINE [Suspect]
     Indication: SPLENECTOMY
     Dosage: 325MG TWICE DAILY OTHER
     Route: 050
     Dates: start: 20080320, end: 20080321

REACTIONS (2)
  - INCORRECT DOSE ADMINISTERED [None]
  - MEDICATION ERROR [None]
